FAERS Safety Report 8817445 (Version 1)
Quarter: 2012Q4

REPORT INFORMATION
  Report Type: 
  Country: US (occurrence: US)
  Receive Date: 20121001
  Receipt Date: 20121001
  Transmission Date: 20130627
  Serious: Yes (Other)
  Sender: FDA-Public Use
  Company Number: US-ASTELLAS-2011US007831

PATIENT
  Age: 73 Year
  Sex: Male

DRUGS (7)
  1. VESICARE [Suspect]
     Indication: BLADDER SPASM
     Dosage: 1 DF, UID/QD
     Route: 048
     Dates: start: 20111117, end: 20111120
  2. CRESTOR [Concomitant]
     Indication: PRODUCT USED FOR UNKNOWN INDICATION
     Dosage: 5 mg, Unknown/D
     Route: 065
  3. TAREG [Concomitant]
     Indication: PRODUCT USED FOR UNKNOWN INDICATION
     Dosage: 160 mg, Unknown/D
     Route: 065
  4. FUROSEMIDE [Concomitant]
     Indication: PRODUCT USED FOR UNKNOWN INDICATION
     Dosage: 20 mg, UID/QD
     Route: 065
  5. COUMADIN [Concomitant]
     Indication: PRODUCT USED FOR UNKNOWN INDICATION
     Dosage: 2.5 mg, UID/QD
     Route: 065
  6. ACETAMINOPHEN [Concomitant]
     Indication: PAIN
     Dosage: 500 pg, UID/QD
     Route: 065
  7. DORMICUM [Concomitant]
     Indication: PRODUCT USED FOR UNKNOWN INDICATION
     Dosage: 3.75-7.5 mg, UID/QD
     Route: 065

REACTIONS (2)
  - Off label use [Unknown]
  - Deafness [Recovering/Resolving]
